FAERS Safety Report 5300331-7 (Version None)
Quarter: 2007Q2

REPORT INFORMATION
  Report Type: 
  Country: None (occurrence: None)
  Receive Date: 20070418
  Receipt Date: 20070411
  Transmission Date: 20071010
  Serious: Yes (Other)
  Sender: FDA-Public Use
  Company Number: PHBS2007US06534

PATIENT
  Age: 72 Year
  Sex: Male

DRUGS (1)
  1. ZOLEDRONIC ACID [Suspect]
     Indication: PLASMACYTOMA
     Dosage: ONCE PER MONTH
     Route: 042

REACTIONS (9)
  - ALVEOLOPLASTY [None]
  - BONE DEBRIDEMENT [None]
  - HYPERBARIC OXYGEN THERAPY [None]
  - JAW DISORDER [None]
  - ORAL DISCOMFORT [None]
  - ORAL INTAKE REDUCED [None]
  - OSTEONECROSIS [None]
  - RADIATION INJURY [None]
  - WEIGHT DECREASED [None]
